FAERS Safety Report 19715415 (Version 1)
Quarter: 2021Q3

REPORT INFORMATION
  Report Type: Spontaneous
  Country: JP (occurrence: JP)
  Receive Date: 20210818
  Receipt Date: 20210818
  Transmission Date: 20211014
  Serious: Yes (Death)
  Sender: FDA-Public Use
  Company Number: JP-ELI_LILLY_AND_COMPANY-JP202107010484

PATIENT
  Age: 73 Year
  Sex: Female
  Weight: 48 kg

DRUGS (6)
  1. TOARASET [Concomitant]
     Active Substance: ACETAMINOPHEN\TRAMADOL HYDROCHLORIDE
     Indication: SPINAL STENOSIS
     Dosage: 3 DOSAGE FORM, BID
     Route: 048
     Dates: end: 20210714
  2. BIOFERMIN [BIFIDOBACTERIUM BIFIDUM] [Concomitant]
     Indication: DIARRHOEA
     Dosage: 3 DOSAGE FORM, BID
     Route: 048
     Dates: start: 20210624, end: 20210714
  3. IRESSA [Suspect]
     Active Substance: GEFITINIB
     Indication: LUNG ADENOCARCINOMA STAGE IV
     Dosage: 250 MG, DAILY
     Route: 048
     Dates: start: 20210706, end: 20210712
  4. CYRAMZA [Suspect]
     Active Substance: RAMUCIRUMAB
     Indication: LUNG ADENOCARCINOMA STAGE IV
     Dosage: 460 MG, CYCLICAL
     Route: 041
     Dates: start: 20210706, end: 20210706
  5. VOLTAREN [Concomitant]
     Active Substance: DICLOFENAC SODIUM
     Indication: CANCER PAIN
     Dosage: 37.5 MG, BID
     Route: 048
     Dates: start: 20210616, end: 20210714
  6. LOPERAMIDE [Concomitant]
     Active Substance: LOPERAMIDE
     Indication: DIARRHOEA
     Dosage: 1 MG, PRN
     Route: 048
     Dates: start: 20210625, end: 20210714

REACTIONS (2)
  - Peritonitis [Fatal]
  - Large intestine perforation [Fatal]

NARRATIVE: CASE EVENT DATE: 202107
